FAERS Safety Report 5558009-0 (Version None)
Quarter: 2007Q4

REPORT INFORMATION
  Report Type: 
  Country: None (occurrence: None)
  Receive Date: 20071214
  Receipt Date: 20071126
  Transmission Date: 20080405
  Serious: Yes (Hospitalization)
  Sender: FDA-Public Use
  Company Number: GB-RANBAXY-2007RR-11725

PATIENT

DRUGS (5)
  1. DICLOFENAC SODIUM [Suspect]
     Indication: PAIN
     Dosage: 50 MG, TID
     Route: 048
     Dates: start: 20060301, end: 20060529
  2. IBUPROFEN [Suspect]
     Indication: PAIN
     Dosage: 1 DF, TID
     Route: 048
     Dates: start: 20060201, end: 20060301
  3. AMLODIPINE [Concomitant]
     Dosage: 10 MG, QD
     Route: 048
  4. GLICLAZIDE [Concomitant]
     Dosage: 160 MG, BID
     Route: 048
  5. METFORMIN 500MG TABLETS [Concomitant]
     Dosage: 500 MG, BID
     Route: 048

REACTIONS (4)
  - ABDOMINAL PAIN UPPER [None]
  - FAECES DISCOLOURED [None]
  - GASTROINTESTINAL HAEMORRHAGE [None]
  - HAEMATEMESIS [None]
